FAERS Safety Report 10182447 (Version 1)
Quarter: 2014Q2

REPORT INFORMATION
  Report Type: Spontaneous
  Country: US (occurrence: US)
  Receive Date: 20140520
  Receipt Date: 20140520
  Transmission Date: 20141212
  Serious: Yes (Hospitalization)
  Sender: FDA-Public Use
  Company Number: US-ASTELLAS-2014US005463

PATIENT
  Age: 57 Year
  Sex: Male

DRUGS (9)
  1. ENZALUTAMIDE [Suspect]
     Indication: PRODUCT USED FOR UNKNOWN INDICATION
     Dosage: UNK UNK, UNKNOWN FREQ.
     Route: 065
  2. PROVENGE [Suspect]
     Indication: PROSTATE CANCER METASTATIC
     Route: 042
     Dates: start: 20131028, end: 20131028
  3. PROVENGE [Suspect]
     Route: 042
     Dates: start: 20131111, end: 20131111
  4. PROVENGE [Suspect]
     Route: 042
     Dates: start: 20131125, end: 20131125
  5. IPILIMUMAB [Suspect]
     Indication: PROSTATE CANCER METASTATIC
     Route: 042
     Dates: start: 20131204, end: 20131204
  6. IPILIMUMAB [Suspect]
     Route: 042
     Dates: start: 20131223, end: 20131223
  7. CIALIS [Suspect]
     Indication: PRODUCT USED FOR UNKNOWN INDICATION
     Route: 065
  8. LEUPRORELIN [Concomitant]
     Indication: PRODUCT USED FOR UNKNOWN INDICATION
     Dosage: UNK UNK, UNKNOWN FREQ.
     Route: 065
  9. UNSPECIFIED TRADITIONAL MEDICINE [Concomitant]
     Indication: METASTASES TO BONE
     Dosage: UNK UNK, UNKNOWN FREQ.
     Route: 065

REACTIONS (2)
  - Acute myocardial infarction [Recovered/Resolved with Sequelae]
  - Cerebrovascular accident [Recovered/Resolved with Sequelae]
